FAERS Safety Report 6163652-4 (Version None)
Quarter: 2009Q2

REPORT INFORMATION
  Report Type: 
  Country: None (occurrence: None)
  Receive Date: 20090420
  Receipt Date: 20081202
  Transmission Date: 20091009
  Serious: Yes (Hospitalization, Disabling)
  Sender: FDA-Public Use
  Company Number: SPV1-2008-02137

PATIENT
  Age: 80 Year
  Sex: Male

DRUGS (11)
  1. LIALDA [Suspect]
     Indication: COLITIS ULCERATIVE
     Dosage: 4.8 G, 1X/DAY:QD, ORAL
     Route: 048
     Dates: start: 20080101, end: 20080901
  2. TRICOR [Concomitant]
  3. SYNTHROID [Concomitant]
  4. MULTIVITAMIN (ASCORBIC ACID, CALCIUM PANTOTHENATE, ERGOCALCIFEROL, NIC [Concomitant]
  5. VITAMIN D [Concomitant]
  6. ASPIRIN [Concomitant]
  7. AMIODARONE HCL [Concomitant]
  8. TOPROL-XL [Concomitant]
  9. VYTORIN [Concomitant]
  10. FLOMAX (MORNIFLUMATE) [Concomitant]
  11. MAVIK [Concomitant]

REACTIONS (1)
  - RASH ERYTHEMATOUS [None]
